FAERS Safety Report 25219501 (Version 3)
Quarter: 2025Q3

REPORT INFORMATION
  Report Type: Spontaneous
  Country: EU (occurrence: EU)
  Receive Date: 20250421
  Receipt Date: 20250708
  Transmission Date: 20251021
  Serious: Yes (Death)
  Sender: CELLTRION
  Company Number: EU-ROCHE-3562087

PATIENT

DRUGS (10)
  1. BEVACIZUMAB [Suspect]
     Active Substance: BEVACIZUMAB
     Indication: Hepatocellular carcinoma
     Route: 042
     Dates: start: 20240417
  2. TIRAGOLUMAB [Suspect]
     Active Substance: TIRAGOLUMAB
     Indication: Hepatocellular carcinoma
     Route: 042
     Dates: start: 20240417
  3. ATEZOLIZUMAB [Suspect]
     Active Substance: ATEZOLIZUMAB
     Indication: Hepatocellular carcinoma
     Route: 042
     Dates: start: 20240417
  4. CARVEDILOL [Concomitant]
     Active Substance: CARVEDILOL
     Indication: Prophylaxis
     Dates: start: 20240321
  5. CARVEDILOL [Concomitant]
     Active Substance: CARVEDILOL
     Route: 048
     Dates: start: 20240312
  6. HERBALS\SAW PALMETTO [Concomitant]
     Active Substance: HERBALS\SAW PALMETTO
     Indication: Benign prostatic hyperplasia
     Route: 048
     Dates: start: 2020, end: 20240826
  7. ESOXX ONE [Concomitant]
     Indication: Gastrooesophageal reflux disease
     Route: 048
     Dates: start: 20240220
  8. DIOSMIN [Concomitant]
     Active Substance: DIOSMIN
     Indication: Haemorrhoidal haemorrhage
     Route: 048
     Dates: start: 20240407, end: 20240409
  9. HESPERIDIN [Concomitant]
     Active Substance: HESPERIDIN
     Indication: Haemorrhoidal haemorrhage
     Route: 048
     Dates: start: 20240407, end: 20240409
  10. PROCTOLYN [Concomitant]
     Indication: Haemorrhoidal haemorrhage
     Route: 054
     Dates: start: 20240407, end: 20240409

REACTIONS (3)
  - Death [Fatal]
  - Hypertension [Recovered/Resolved]
  - Intentional product use issue [Unknown]

NARRATIVE: CASE EVENT DATE: 20240508
